FAERS Safety Report 7167095-6 (Version None)
Quarter: 2010Q4

REPORT INFORMATION
  Report Type: 
  Country: None (occurrence: None)
  Receive Date: 20101202
  Receipt Date: 20101119
  Transmission Date: 20110411
  Serious: Yes (Hospitalization)
  Sender: FDA-Public Use
  Company Number: CRC-10-210

PATIENT
  Sex: Male
  Weight: 15.8 kg

DRUGS (6)
  1. VECURONIUM BROMIDE [Suspect]
     Indication: SURGERY
     Dosage: 1.5MG IVP
     Route: 042
     Dates: start: 20101119
  2. SEVOFLURANE [Concomitant]
  3. FORANE [Concomitant]
  4. FENTANYL-100 [Concomitant]
  5. LACTATE RINGERS [Concomitant]
  6. INTUBATION [Concomitant]

REACTIONS (1)
  - DRUG EFFECT DECREASED [None]
